FAERS Safety Report 7637108-3 (Version None)
Quarter: 2011Q3

REPORT INFORMATION
  Report Type: 
  Country: None (occurrence: None)
  Receive Date: 20110726
  Receipt Date: 20110712
  Transmission Date: 20111222
  Serious: Yes (Other)
  Sender: FDA-Public Use
  Company Number: JP-MYLANLABS-2011S1007458

PATIENT
  Age: 60 Year
  Sex: Female

DRUGS (16)
  1. PACLITAXEL [Suspect]
     Route: 041
     Dates: start: 20110303, end: 20110303
  2. GEMZAR [Suspect]
     Route: 041
     Dates: start: 20110317, end: 20110317
  3. PACLITAXEL [Suspect]
     Route: 041
     Dates: start: 20110324, end: 20110324
  4. GEMZAR [Suspect]
     Route: 041
     Dates: start: 20110303, end: 20110303
  5. ZOMETA [Concomitant]
     Indication: PRODUCT USED FOR UNKNOWN INDICATION
     Route: 041
  6. EPIRUBICIN [Concomitant]
     Indication: PRODUCT USED FOR UNKNOWN INDICATION
  7. ONEALFA [Concomitant]
     Indication: PRODUCT USED FOR UNKNOWN INDICATION
     Route: 048
  8. CYCLOPHOSPHAMIDE [Concomitant]
     Indication: PRODUCT USED FOR UNKNOWN INDICATION
  9. PACLITAXEL [Suspect]
     Indication: BREAST CANCER
     Route: 041
     Dates: start: 20110224, end: 20110224
  10. URSO /00465701/ [Concomitant]
     Indication: PRODUCT USED FOR UNKNOWN INDICATION
     Route: 048
  11. PACLITAXEL [Suspect]
     Route: 041
     Dates: start: 20110317, end: 20110317
  12. UFT [Suspect]
     Indication: BREAST CANCER
     Route: 048
     Dates: start: 20090101, end: 20110127
  13. GEMZAR [Suspect]
     Indication: BREAST CANCER
     Route: 041
     Dates: start: 20110224, end: 20110224
  14. GEMZAR [Suspect]
     Route: 041
     Dates: start: 20110324, end: 20110324
  15. MUCOSTA [Concomitant]
     Indication: PRODUCT USED FOR UNKNOWN INDICATION
     Route: 048
  16. FLUOROURACIL [Concomitant]
     Indication: PRODUCT USED FOR UNKNOWN INDICATION

REACTIONS (1)
  - PALMAR-PLANTAR ERYTHRODYSAESTHESIA SYNDROME [None]
